FAERS Safety Report 23492255 (Version 1)
Quarter: 2024Q1

REPORT INFORMATION
  Report Type: Report from Study
  Country: US (occurrence: US)
  Receive Date: 20240207
  Receipt Date: 20240207
  Transmission Date: 20240410
  Serious: No
  Sender: FDA-Public Use
  Company Number: US-ORG100014127-2023000716

PATIENT
  Age: 75 Year
  Sex: Female

DRUGS (11)
  1. LYSODREN [Suspect]
     Active Substance: MITOTANE
     Indication: Adrenocortical carcinoma
     Dosage: 500 MG: 02 TABLETS (1,000 MG) 02 TIMES A DAY
     Route: 048
     Dates: start: 20230224
  2. ASPIRIN LOW TAB 81MG EC [Concomitant]
     Indication: Product used for unknown indication
  3. ATORVASTATIN TAB 10MG [Concomitant]
     Indication: Product used for unknown indication
  4. CALCIUM CITR TAB 200MG [Concomitant]
     Indication: Product used for unknown indication
  5. COPPER TAB 2MG [Concomitant]
     Indication: Product used for unknown indication
  6. IBUPROFEN TAB 400MG; [Concomitant]
     Indication: Product used for unknown indication
  7. MANGANESE TAB 50MG [Concomitant]
     Indication: Product used for unknown indication
  8. RIZATRIPTAN TAB 5MG [Concomitant]
     Indication: Product used for unknown indication
  9. TYLENOL TAB 500MG [Concomitant]
     Indication: Product used for unknown indication
  10. VITAMIN D TAB 1000UNIT [Concomitant]
     Indication: Product used for unknown indication
  11. ZINC TAB 50MG [Concomitant]
     Indication: Product used for unknown indication

REACTIONS (2)
  - Pelvic pain [Not Recovered/Not Resolved]
  - Fatigue [Not Recovered/Not Resolved]

NARRATIVE: CASE EVENT DATE: 20230501
